FAERS Safety Report 24899140 (Version 1)
Quarter: 2025Q1

REPORT INFORMATION
  Report Type: Spontaneous
  Country: US (occurrence: None)
  Receive Date: 20250129
  Receipt Date: 20250129
  Transmission Date: 20250409
  Serious: Yes (Hospitalization)
  Sender: FDA-CTU
  Company Number: None

PATIENT
  Age: 61 Year
  Sex: Male
  Weight: 92.4 kg

DRUGS (3)
  1. METHOTREXATE [Suspect]
     Active Substance: METHOTREXATE
     Dates: end: 20250110
  2. PONATINIB [Suspect]
     Active Substance: PONATINIB
     Dates: end: 20250111
  3. CYTARABINE [Suspect]
     Active Substance: CYTARABINE

REACTIONS (5)
  - Blood creatinine increased [None]
  - Pleural effusion [None]
  - Confusional state [None]
  - Pyrexia [None]
  - Drug abuse [None]

NARRATIVE: CASE EVENT DATE: 20250111
